FAERS Safety Report 18748905 (Version 21)
Quarter: 2024Q1

REPORT INFORMATION
  Report Type: Report from Study
  Country: CO (occurrence: CO)
  Receive Date: 20210116
  Receipt Date: 20240328
  Transmission Date: 20240410
  Serious: Yes (Other)
  Sender: FDA-Public Use
  Company Number: CO-TAKEDA-2020TUS038794

PATIENT
  Age: 28 Year
  Sex: Male
  Weight: 78 kg

DRUGS (2)
  1. VEDOLIZUMAB [Suspect]
     Active Substance: VEDOLIZUMAB
     Indication: Colitis ulcerative
     Dosage: 300 MILLIGRAM
     Route: 042
     Dates: start: 20191216
  2. BILASTINE [Concomitant]
     Active Substance: BILASTINE
     Dosage: 20 MILLIGRAM

REACTIONS (20)
  - Blastocystis infection [Recovered/Resolved]
  - COVID-19 [Recovered/Resolved]
  - Colitis [Unknown]
  - Infusion site coldness [Recovered/Resolved]
  - Hypoaesthesia [Recovered/Resolved]
  - Diarrhoea [Recovered/Resolved]
  - Weight increased [Unknown]
  - Weight decreased [Unknown]
  - Anogenital warts [Recovering/Resolving]
  - Bleeding time prolonged [Unknown]
  - Urticaria chronic [Unknown]
  - Anxiety [Recovering/Resolving]
  - Stress [Recovering/Resolving]
  - Asthenia [Unknown]
  - Influenza like illness [Unknown]
  - Malaise [Unknown]
  - Product dose omission issue [Unknown]
  - Hypersensitivity [Recovering/Resolving]
  - Arthralgia [Recovered/Resolved]
  - Cough [Recovering/Resolving]

NARRATIVE: CASE EVENT DATE: 20201218
